FAERS Safety Report 16999989 (Version 1)
Quarter: 2019Q4

REPORT INFORMATION
  Report Type: Spontaneous
  Country: US (occurrence: US)
  Receive Date: 20191106
  Receipt Date: 20191106
  Transmission Date: 20200122
  Serious: No
  Sender: FDA-Public Use
  Company Number: US-TEVA-2019-US-1131588

PATIENT
  Age: 44 Year
  Sex: Female

DRUGS (1)
  1. CLONAZEPAM TEVA [Suspect]
     Active Substance: CLONAZEPAM
     Indication: GENERALISED ANXIETY DISORDER
     Dosage: DOSE STRENGTH:  0.5 MG
     Route: 065
     Dates: start: 20191027

REACTIONS (3)
  - Disturbance in attention [Unknown]
  - Dizziness [Unknown]
  - Feeling abnormal [Unknown]
